FAERS Safety Report 10779843 (Version 2)
Quarter: 2015Q1

REPORT INFORMATION
  Report Type: Report from Study
  Country: PL (occurrence: PL)
  Receive Date: 20150210
  Receipt Date: 20150310
  Transmission Date: 20150721
  Serious: Yes (Hospitalization)
  Sender: FDA-Public Use
  Company Number: PHHY2015PL015400

PATIENT
  Age: 3 Year
  Sex: Female
  Weight: 14.4 kg

DRUGS (4)
  1. ALFADIOL [Concomitant]
     Active Substance: ALFACALCIDOL
     Indication: PROPHYLAXIS
     Dosage: 0.25 UG, QD
     Route: 048
  2. EXJADE [Suspect]
     Active Substance: DEFERASIROX
     Indication: SERUM FERRITIN INCREASED
     Dosage: 250 MG, QD
     Route: 065
     Dates: start: 20150102
  3. CALPEROS [Concomitant]
     Active Substance: CALCIUM CARBONATE
     Indication: PROPHYLAXIS
     Dosage: 0.5 G, BID
     Route: 048
  4. BISEPTOL [Concomitant]
     Active Substance: SULFAMETHOXAZOLE\TRIMETHOPRIM
     Indication: PROPHYLAXIS
     Dosage: 2 DF, QW3
     Route: 048

REACTIONS (5)
  - Metabolic acidosis [Recovered/Resolved]
  - Decreased appetite [Recovered/Resolved]
  - Leukocyturia [Recovered/Resolved]
  - Escherichia urinary tract infection [Recovered/Resolved]
  - Proteinuria [Recovered/Resolved]

NARRATIVE: CASE EVENT DATE: 20150202
